FAERS Safety Report 25798761 (Version 1)
Quarter: 2025Q3

REPORT INFORMATION
  Report Type: Spontaneous
  Country: EU (occurrence: EU)
  Receive Date: 20250913
  Receipt Date: 20250913
  Transmission Date: 20251021
  Serious: Yes (Life-Threatening)
  Sender: AUROBINDO
  Company Number: EU-ABBVIE-6431547

PATIENT
  Age: 78 Year
  Sex: Male

DRUGS (21)
  1. AZACITIDINE [Suspect]
     Active Substance: AZACITIDINE
     Indication: Acute myeloid leukaemia
     Route: 065
     Dates: start: 20240819, end: 20240825
  2. AZACITIDINE [Suspect]
     Active Substance: AZACITIDINE
     Route: 065
     Dates: start: 20241007, end: 20241015
  3. AZACITIDINE [Suspect]
     Active Substance: AZACITIDINE
     Route: 065
     Dates: start: 20241120, end: 20241128
  4. VENETOCLAX [Suspect]
     Active Substance: VENETOCLAX
     Indication: Acute myeloid leukaemia
     Dosage: 10 MILLIGRAM, UNK
     Route: 048
     Dates: start: 20240819, end: 20240819
  5. VENETOCLAX [Suspect]
     Active Substance: VENETOCLAX
     Dosage: 20 MILLIGRAM, UNK
     Route: 048
     Dates: start: 20240820, end: 20240820
  6. VENETOCLAX [Suspect]
     Active Substance: VENETOCLAX
     Dosage: 50 MILLIGRAM, UNK
     Route: 048
     Dates: start: 20240821, end: 20240821
  7. VENETOCLAX [Suspect]
     Active Substance: VENETOCLAX
     Dosage: 100 MILLIGRAM, UNK
     Route: 048
     Dates: start: 20240822, end: 20240901
  8. VENETOCLAX [Suspect]
     Active Substance: VENETOCLAX
     Route: 048
     Dates: end: 20250128
  9. LEVOTHYROXINE SODIUM [Concomitant]
     Active Substance: LEVOTHYROXINE SODIUM
     Indication: Post procedural hypothyroidism
     Route: 048
     Dates: start: 20220420
  10. ESCITALOPRAM [Concomitant]
     Active Substance: ESCITALOPRAM OXALATE
     Indication: Anxiety
     Route: 048
     Dates: start: 20210505
  11. ESCITALOPRAM [Concomitant]
     Active Substance: ESCITALOPRAM OXALATE
     Indication: Depression
  12. OMEPRAZOLE [Concomitant]
     Active Substance: OMEPRAZOLE
     Indication: Antacid therapy
     Route: 065
     Dates: start: 20240815
  13. ACYCLOVIR [Concomitant]
     Active Substance: ACYCLOVIR
     Indication: Antiviral prophylaxis
     Route: 048
     Dates: start: 20240815
  14. POSACONAZOLE [Concomitant]
     Active Substance: POSACONAZOLE
     Indication: Antifungal prophylaxis
     Route: 048
     Dates: start: 20240815
  15. ALLOPURINOL [Concomitant]
     Active Substance: ALLOPURINOL
     Indication: Prophylaxis
     Dosage: 300 MILLIGRAM, UNK
     Route: 048
     Dates: start: 20240815, end: 20240903
  16. ZOFRAN [Concomitant]
     Active Substance: ONDANSETRON HYDROCHLORIDE
     Indication: Prophylaxis of nausea and vomiting
     Dosage: 8 MILLIGRAM, UNK
     Route: 065
     Dates: start: 20240815, end: 20240821
  17. AZITHROMYCIN [Concomitant]
     Active Substance: AZITHROMYCIN
     Indication: Product used for unknown indication
     Route: 065
     Dates: start: 20240827, end: 20240904
  18. Calcium carbonate;Citric acid [Concomitant]
     Indication: Vitamin D deficiency
     Dosage: 1000 MILLIGRAM, UNK
     Route: 065
     Dates: start: 20200406
  19. CHOLECALCIFEROL [Concomitant]
     Active Substance: CHOLECALCIFEROL
     Indication: Vitamin D deficiency
     Route: 048
     Dates: start: 20200505
  20. LEVOFLOXACIN [Concomitant]
     Active Substance: LEVOFLOXACIN
     Indication: Pneumonia
     Dosage: 500 MILLIGRAM, UNK
     Route: 048
  21. Tigacil [Concomitant]
     Indication: Product used for unknown indication
     Dosage: 1 GRAM, UNK
     Route: 065
     Dates: start: 20240827, end: 20240903

REACTIONS (1)
  - Condition aggravated [Not Recovered/Not Resolved]

NARRATIVE: CASE EVENT DATE: 20250128
